FAERS Safety Report 4639103-5 (Version None)
Quarter: 2005Q2

REPORT INFORMATION
  Report Type: 
  Country: None (occurrence: None)
  Receive Date: 20050418
  Receipt Date: 20050406
  Transmission Date: 20051028
  Serious: Yes (Hospitalization)
  Sender: FDA-Public Use
  Company Number: 2005056399

PATIENT
  Age: 78 Year
  Sex: Male
  Weight: 44.7 kg

DRUGS (4)
  1. SPIRONOLACTONE [Suspect]
     Indication: ATRIAL FIBRILLATION
     Dates: end: 20030101
  2. ENALAPRIL MALEATE [Suspect]
     Indication: ATRIAL FIBRILLATION
     Dates: end: 20030101
  3. DIGOXIN [Suspect]
     Indication: ATRIAL FIBRILLATION
     Dates: end: 20030101
  4. VERAPAMIL [Suspect]
     Indication: ATRIAL FIBRILLATION
     Dates: end: 20030101

REACTIONS (8)
  - BLOOD ANTIDIURETIC HORMONE INCREASED [None]
  - BLOOD PRESSURE DECREASED [None]
  - BODY TEMPERATURE DECREASED [None]
  - HYPONATRAEMIA [None]
  - INAPPROPRIATE ANTIDIURETIC HORMONE SECRETION [None]
  - LOSS OF CONSCIOUSNESS [None]
  - MALAISE [None]
  - VENTRICULAR HYPERTROPHY [None]
